FAERS Safety Report 6997472-5 (Version None)
Quarter: 2010Q3

REPORT INFORMATION
  Report Type: 
  Country: None (occurrence: None)
  Receive Date: 20100918
  Receipt Date: 20091015
  Transmission Date: 20110219
  Serious: No
  Sender: FDA-Public Use
  Company Number: US-WYE-H11708609

PATIENT
  Sex: Male

DRUGS (4)
  1. PRISTIQ [Suspect]
     Indication: DEPRESSION
     Dosage: 50 MG
     Route: 048
     Dates: start: 20091008
  2. PRISTIQ [Suspect]
     Dosage: 50 MG EVERY OTHER DAY
     Route: 048
     Dates: start: 20091001
  3. WARFARIN SODIUM [Concomitant]
  4. QUINAPRIL [Concomitant]

REACTIONS (1)
  - CONFUSIONAL STATE [None]
